FAERS Safety Report 22981333 (Version 2)
Quarter: 2023Q4

REPORT INFORMATION
  Report Type: Spontaneous
  Country: IT (occurrence: IT)
  Receive Date: 20230925
  Receipt Date: 20231010
  Transmission Date: 20240110
  Serious: Yes (Hospitalization, Other)
  Sender: FDA-Public Use
  Company Number: IT-KRKA-IT2023K12896LIT

PATIENT
  Age: 50 Year
  Sex: Male

DRUGS (8)
  1. AZITHROMYCIN [Suspect]
     Active Substance: AZITHROMYCIN
     Indication: Rhodococcus infection
     Dosage: 250 MG, PER DAY
     Route: 065
  2. AZITHROMYCIN [Suspect]
     Active Substance: AZITHROMYCIN
     Indication: Antibiotic therapy
  3. TENOFOVIR ALAFENAMIDE [Suspect]
     Active Substance: TENOFOVIR ALAFENAMIDE
     Indication: Antiretroviral therapy
     Dosage: 25 MILLIGRAM, QQ
     Route: 065
  4. LEVOFLOXACIN [Suspect]
     Active Substance: LEVOFLOXACIN
     Indication: Antibiotic therapy
     Dosage: 750 MILLIGRAM, QD (12 MONTHS OF TREATEMENT)
     Route: 065
  5. SULFAMETHOXAZOLE AND TRIMETHOPRIM [Suspect]
     Active Substance: SULFAMETHOXAZOLE\TRIMETHOPRIM
     Indication: Infection prophylaxis
     Dosage: UNK, QD,160/800MG
     Route: 065
  6. BICTEGRAVIR [Suspect]
     Active Substance: BICTEGRAVIR
     Indication: Antiretroviral therapy
     Dosage: 50 MG
     Route: 065
  7. EMTRICITABINE [Suspect]
     Active Substance: EMTRICITABINE
     Indication: Antiretroviral therapy
     Dosage: 200 MG
     Route: 065
  8. CIPROFLOXACIN [Suspect]
     Active Substance: CIPROFLOXACIN
     Indication: Rhodococcus infection
     Dosage: 400 MILLIGRAM, BID,400 MG/12 HOURS
     Route: 042

REACTIONS (3)
  - Diarrhoea haemorrhagic [Unknown]
  - Anaemia [Unknown]
  - Rhodococcus infection [Recovered/Resolved]
